FAERS Safety Report 8458653-7 (Version None)
Quarter: 2012Q2

REPORT INFORMATION
  Report Type: 
  Country: None (occurrence: None)
  Receive Date: 20120622
  Receipt Date: 20120618
  Transmission Date: 20120825
  Serious: Yes (Other)
  Sender: FDA-Public Use
  Company Number: JP-PFIZER INC-2012146718

PATIENT
  Age: 65 Year
  Sex: Male

DRUGS (2)
  1. CLONAZEPAM [Concomitant]
     Dosage: UNK
  2. LYRICA [Suspect]
     Dosage: 75 MG, 2X/DAY

REACTIONS (2)
  - LOSS OF CONSCIOUSNESS [None]
  - ROAD TRAFFIC ACCIDENT [None]
